FAERS Safety Report 20317767 (Version 1)
Quarter: 2022Q1

REPORT INFORMATION
  Report Type: Spontaneous
  Country: US (occurrence: None)
  Receive Date: 20220107
  Receipt Date: 20220107
  Transmission Date: 20220423
  Serious: Yes (Hospitalization)
  Sender: FDA-Public Use
  Company Number: None

PATIENT
  Age: 41 Year
  Sex: Male
  Weight: 85.5 kg

DRUGS (1)
  1. INVEGA SUSTENNA [Suspect]
     Active Substance: PALIPERIDONE PALMITATE
     Indication: Schizoaffective disorder
     Dosage: OTHER FREQUENCY : ONCE;?
     Route: 030
     Dates: start: 20211231

REACTIONS (5)
  - Dizziness [None]
  - Dyspnoea [None]
  - Throat tightness [None]
  - Lethargy [None]
  - Injection related reaction [None]

NARRATIVE: CASE EVENT DATE: 20220107
